FAERS Safety Report 4332743-2 (Version None)
Quarter: 2004Q1

REPORT INFORMATION
  Report Type: 
  Country: None (occurrence: None)
  Receive Date: 20040330
  Receipt Date: 20040305
  Transmission Date: 20041129
  Serious: No
  Sender: FDA-Public Use
  Company Number: A04200400033

PATIENT
  Age: 79 Year
  Sex: Male

DRUGS (6)
  1. ARIXTRA [Suspect]
     Indication: FEMORAL NECK FRACTURE
     Dosage: 2.5 MG OD; TIME TO ONSET : 1 WEEK 1 DAY
     Route: 058
     Dates: start: 20031127, end: 20031220
  2. ARIXTRA [Suspect]
     Indication: HIP ARTHROPLASTY
     Dosage: 2.5 MG OD; TIME TO ONSET : 1 WEEK 1 DAY
     Route: 058
     Dates: start: 20031127, end: 20031220
  3. ARIXTRA [Suspect]
     Indication: THROMBOSIS PROPHYLAXIS
     Dosage: 2.5 MG OD; TIME TO ONSET : 1 WEEK 1 DAY
     Route: 058
     Dates: start: 20031127, end: 20031220
  4. CORANGIN (ISOSORBIDE MONONITRATE) [Concomitant]
  5. TRENTAL [Concomitant]
  6. VIOXX [Concomitant]

REACTIONS (4)
  - ANAEMIA [None]
  - GASTRIC ULCER HAEMORRHAGE [None]
  - GENERAL PHYSICAL HEALTH DETERIORATION [None]
  - MELAENA [None]
